FAERS Safety Report 8799696 (Version 2)
Quarter: 2012Q4

REPORT INFORMATION
  Report Type: Spontaneous
  Country: JP (occurrence: None)
  Receive Date: 20120914
  Receipt Date: 20120921
  Transmission Date: 20130627
  Serious: Yes (Other)
  Sender: FDA-Public Use
  Company Number: ABR_00624_2012

PATIENT

DRUGS (2)
  1. E-MYCIN [Suspect]
     Indication: PRODUCT USED FOR UNKNOWN INDICATION
     Dosage: (DF)
     Route: 064
  2. CEFMETAZOLE [Suspect]
     Dosage: (DF)
     Route: 064

REACTIONS (6)
  - Caesarean section [None]
  - Exposure during pregnancy [None]
  - Premature labour [None]
  - Ureaplasma test positive [None]
  - Premature rupture of membranes [None]
  - Amniocentesis abnormal [None]
